FAERS Safety Report 7045808-1 (Version None)
Quarter: 2010Q4

REPORT INFORMATION
  Report Type: 
  Country: None (occurrence: None)
  Receive Date: 20101014
  Receipt Date: 20101006
  Transmission Date: 20110411
  Serious: Yes (Other)
  Sender: FDA-Public Use
  Company Number: US-JNJCH-2010022944

PATIENT
  Age: 52 Year
  Sex: Male
  Weight: 104.3 kg

DRUGS (1)
  1. ROGAINE [Suspect]
     Indication: ALOPECIA
     Dosage: TEXT:AS DIRECTED TWO TIMES A DAY
     Route: 061
     Dates: start: 20100901, end: 20100922

REACTIONS (4)
  - APPLICATION SITE ERYTHEMA [None]
  - APPLICATION SITE PAIN [None]
  - APPLICATION SITE SCAB [None]
  - RASH PAPULAR [None]
